FAERS Safety Report 25187520 (Version 1)
Quarter: 2025Q2

REPORT INFORMATION
  Report Type: Other
  Country: US (occurrence: US)
  Receive Date: 20250411
  Receipt Date: 20250411
  Transmission Date: 20250716
  Serious: Yes (Death, Other)
  Sender: ALVOGEN
  Company Number: US-ALVOGEN-2025096630

PATIENT
  Age: 50 Year
  Sex: Female

DRUGS (2)
  1. FENTANYL [Suspect]
     Active Substance: FENTANYL
     Indication: Drug abuse
     Route: 051
  2. METHAMPHETAMINE [Suspect]
     Active Substance: METHAMPHETAMINE
     Indication: Drug abuse
     Route: 051

REACTIONS (5)
  - Cardiac arrest [Unknown]
  - Respiratory arrest [Unknown]
  - Drug abuse [Fatal]
  - Incorrect route of product administration [Unknown]
  - Prescription drug used without a prescription [Unknown]
